FAERS Safety Report 20335059 (Version 3)
Quarter: 2022Q1

REPORT INFORMATION
  Report Type: Spontaneous
  Country: JP (occurrence: JP)
  Receive Date: 20220114
  Receipt Date: 20220318
  Transmission Date: 20220423
  Serious: Yes (Other)
  Sender: FDA-Public Use
  Company Number: JP-GLAXOSMITHKLINE-JP2021JPN253000

PATIENT
  Age: 35 Year
  Sex: Female
  Weight: 53 kg

DRUGS (9)
  1. BENLYSTA [Suspect]
     Active Substance: BELIMUMAB
     Indication: Systemic lupus erythematosus
     Dosage: 200 MG, WE
     Route: 058
     Dates: start: 201901
  2. CELLCEPT [Suspect]
     Active Substance: MYCOPHENOLATE MOFETIL
     Indication: Systemic lupus erythematosus
     Dosage: 750 MG, 1D (500 MG AFTER BREAKFAST, 250 MG AFTER DINNER)
     Route: 048
     Dates: start: 20200801, end: 20211208
  3. PREDNISOLONE [Concomitant]
     Active Substance: PREDNISOLONE
     Indication: Systemic lupus erythematosus
     Dosage: 5 MG, BID, AFTER BREAKFAST AND DINNER
     Route: 048
     Dates: start: 20180409
  4. ELDECALCITOL [Concomitant]
     Active Substance: ELDECALCITOL
     Indication: Prophylaxis
     Dosage: 0.75 MG, QD, AFTER BREAKFAST
     Route: 048
     Dates: start: 20210715, end: 20211208
  5. REBAMIPIDE [Concomitant]
     Active Substance: REBAMIPIDE
     Indication: Prophylaxis
     Dosage: 100 MG, BID, 250 MG BID, AFTER BREAKFAST AND DINNER
     Route: 048
  6. MAGNESIUM OXIDE [Concomitant]
     Active Substance: MAGNESIUM OXIDE
     Indication: Prophylaxis
     Dosage: 250 MG, BID, AFTER BREAKFAST AND DINNER
     Route: 048
  7. SENNOSIDES [Concomitant]
     Active Substance: SENNOSIDES
     Indication: Constipation
     Dosage: 12 MG, PRN
  8. RINDERON-VG LOTION [Concomitant]
     Dosage: UNK, QD
     Route: 061
  9. LOXOPROFEN SODIUM [Concomitant]
     Active Substance: LOXOPROFEN SODIUM
     Dosage: 60 MG, QD, AFTER BREAKFAST
     Dates: start: 20211104

REACTIONS (3)
  - Abortion spontaneous [Unknown]
  - Proteinuria [Unknown]
  - Exposure during pregnancy [Unknown]

NARRATIVE: CASE EVENT DATE: 20211230
